FAERS Safety Report 16947998 (Version 1)
Quarter: 2019Q4

REPORT INFORMATION
  Report Type: Spontaneous
  Country: US (occurrence: US)
  Receive Date: 20191022
  Receipt Date: 20191022
  Transmission Date: 20200122
  Serious: No
  Sender: FDA-Public Use
  Company Number: US-ROCHE-2317163

PATIENT
  Sex: Female

DRUGS (1)
  1. ESBRIET [Suspect]
     Active Substance: PIRFENIDONE
     Indication: IDIOPATHIC PULMONARY FIBROSIS
     Route: 048
     Dates: start: 20190306

REACTIONS (4)
  - Depression [Not Recovered/Not Resolved]
  - Nightmare [Recovered/Resolved]
  - Abnormal dreams [Not Recovered/Not Resolved]
  - Poor quality sleep [Recovered/Resolved]
